FAERS Safety Report 4290402-9 (Version None)
Quarter: 2004Q1

REPORT INFORMATION
  Report Type: 
  Country: None (occurrence: None)
  Receive Date: 20040126
  Receipt Date: 20031008
  Transmission Date: 20041129
  Serious: No
  Sender: FDA-Public Use
  Company Number: USA030948227

PATIENT
  Age: 67 Year
  Sex: Male

DRUGS (4)
  1. FORTEO [Suspect]
     Indication: OSTEOPOROSIS
     Dosage: 20UG/DAY
     Dates: start: 20030201
  2. PAXIL [Concomitant]
  3. DOXEPIN HCL [Concomitant]
  4. LORAZEPAM [Concomitant]

REACTIONS (5)
  - BREAST TENDERNESS [None]
  - DISTURBANCE IN ATTENTION [None]
  - NIPPLE DISORDER [None]
  - PRURITUS [None]
  - RASH [None]
